FAERS Safety Report 7386644-6 (Version None)
Quarter: 2011Q1

REPORT INFORMATION
  Report Type: 
  Country: None (occurrence: None)
  Receive Date: 20110329
  Receipt Date: 20110329
  Transmission Date: 20110831
  Serious: Yes (Hospitalization)
  Sender: FDA-Public Use
  Company Number: None

PATIENT
  Age: 71 Year
  Sex: Male
  Weight: 90.7194 kg

DRUGS (1)
  1. COZAAR [Suspect]
     Indication: BLOOD PRESSURE ABNORMAL
     Dosage: 100MG ONCE DAILY PO
     Route: 048
     Dates: start: 20091220, end: 20100120

REACTIONS (8)
  - RASH [None]
  - FATIGUE [None]
  - MYALGIA [None]
  - SYNCOPE [None]
  - ABDOMINAL PAIN UPPER [None]
  - VISION BLURRED [None]
  - DEHYDRATION [None]
  - DISTURBANCE IN ATTENTION [None]
